FAERS Safety Report 21212775 (Version 2)
Quarter: 2022Q3

REPORT INFORMATION
  Report Type: Report from Study
  Country: GB (occurrence: GB)
  Receive Date: 20220815
  Receipt Date: 20220923
  Transmission Date: 20221026
  Serious: Yes (Death, Hospitalization, Other)
  Sender: FDA-Public Use
  Company Number: GB-NOVARTISPH-NVSC2022GB181355

PATIENT
  Age: 16 Year
  Sex: Male

DRUGS (3)
  1. TRAMETINIB [Suspect]
     Active Substance: TRAMETINIB
     Indication: Leukaemia recurrent
     Dosage: 1 MG
     Route: 048
     Dates: start: 20211225, end: 20211228
  2. CYCLOPHOSPHAMIDE [Concomitant]
     Active Substance: CYCLOPHOSPHAMIDE
     Indication: Leukaemia
     Dosage: 1280 MG
     Route: 042
     Dates: start: 20211216, end: 20211216
  3. CYTARABINE [Concomitant]
     Active Substance: CYTARABINE
     Indication: Leukaemia
     Dosage: 96 MG, QD
     Route: 042
     Dates: start: 20211217, end: 20211220

REACTIONS (8)
  - Sepsis [Fatal]
  - Gastrointestinal haemorrhage [Fatal]
  - Pain [Unknown]
  - Thrombocytopenia [Unknown]
  - Neutropenia [Unknown]
  - Pancytopenia [Unknown]
  - Condition aggravated [Unknown]
  - Pyrexia [Recovered/Resolved]

NARRATIVE: CASE EVENT DATE: 20211228
